FAERS Safety Report 15769322 (Version 9)
Quarter: 2022Q1

REPORT INFORMATION
  Report Type: Report from Study
  Country: CN (occurrence: None)
  Receive Date: 20181228
  Receipt Date: 20220103
  Transmission Date: 20220423
  Serious: Yes (Hospitalization)
  Sender: FDA-Public Use
  Company Number: CN-ROCHE-2232038

PATIENT
  Age: 48 Year
  Sex: Female
  Weight: 55.5 kg

DRUGS (9)
  1. TOCILIZUMAB [Suspect]
     Active Substance: TOCILIZUMAB
     Indication: Rheumatoid arthritis
     Dosage: DATE OF MOST RECENT DOSE OF BLINDED TOCILIZUMAB PRIOR TO THE ONSET OF FUNCTIONAL UTERINE BLEEDING: 1
     Route: 058
     Dates: start: 20180312
  2. METHOTREXATE (METHOTREXATE SODIUM) [Suspect]
     Active Substance: METHOTREXATE SODIUM
     Indication: Rheumatoid arthritis
     Dosage: DATE OF MOST RECENT DOSE OF BLINDED METHOTREXATE PRIOR TO THE ONSET OF FUNCTIONAL UTERINE BLEEDING:
     Route: 048
     Dates: start: 20180318
  3. TOCILIZUMAB [Suspect]
     Active Substance: TOCILIZUMAB
     Indication: Rheumatoid arthritis
     Dosage: FORM STRENGTH: 180 MG/ML?DATE OF MOST RECENT DOSE OF OPEN LABEL TOCILIZUMAB PRIOR TO THE DATE ON WHI
     Route: 058
     Dates: start: 20180704
  4. METHOTREXATE [Suspect]
     Active Substance: METHOTREXATE
     Indication: Rheumatoid arthritis
     Dosage: 10 TO 2.5 MG?DATE OF MOST RECENT DOSE OF OPEN LABEL METHOTREXATE PRIOR TO THE DATE ON WHICH THE FUNC
     Route: 048
     Dates: start: 20180708
  5. METACORTANDRACIN [Concomitant]
     Indication: Rheumatoid arthritis
     Route: 048
     Dates: start: 20150706
  6. METACORTANDRACIN [Concomitant]
     Route: 048
     Dates: start: 20151124
  7. ALFACALCIDOL [Concomitant]
     Active Substance: ALFACALCIDOL
     Indication: Osteoporosis
     Dates: start: 20160712
  8. CALCIUM [Concomitant]
     Active Substance: CALCIUM
     Indication: Osteoporosis
     Dates: start: 20160712
  9. FOLIC ACID [Concomitant]
     Active Substance: FOLIC ACID
     Dates: start: 20160927

REACTIONS (1)
  - Uterine haemorrhage [Recovered/Resolved]

NARRATIVE: CASE EVENT DATE: 20181215
